FAERS Safety Report 10976255 (Version 2)
Quarter: 2015Q2

REPORT INFORMATION
  Report Type: Spontaneous
  Country: US (occurrence: US)
  Receive Date: 20150401
  Receipt Date: 20150525
  Transmission Date: 20150821
  Serious: No
  Sender: FDA-Public Use
  Company Number: US-JNJFOC-20130811696

PATIENT
  Age: 33 Year
  Sex: Female
  Weight: 120.2 kg

DRUGS (3)
  1. RISPERDAL CONSTA [Suspect]
     Active Substance: RISPERIDONE
     Indication: PRODUCT USED FOR UNKNOWN INDICATION
     Route: 042
     Dates: start: 20130728
  2. COGENTIN [Concomitant]
     Active Substance: BENZTROPINE MESYLATE
     Dosage: 1/2 AT BED TIME
     Route: 048
     Dates: start: 201307
  3. RISPERDAL [Concomitant]
     Active Substance: RISPERIDONE
     Dosage: 1/2 AT BED TIME
     Route: 048
     Dates: start: 201307

REACTIONS (2)
  - Treatment noncompliance [Unknown]
  - Drug dose omission [Not Recovered/Not Resolved]

NARRATIVE: CASE EVENT DATE: 20130728
